FAERS Safety Report 6024298-1 (Version None)
Quarter: 2008Q4

REPORT INFORMATION
  Report Type: 
  Country: None (occurrence: None)
  Receive Date: 20081222
  Receipt Date: 20081104
  Transmission Date: 20090506
  Serious: No
  Sender: FDA-Public Use
  Company Number: SPV1-2008-02439

PATIENT
  Age: 44 Year
  Sex: Female
  Weight: 60.3 kg

DRUGS (5)
  1. VYVANSE [Suspect]
     Indication: ATTENTION DEFICIT/HYPERACTIVITY DISORDER
     Dosage: 50 MG, 1X/DAY:QD, ORAL ; 40 MG, 1X/DAY:QD, ORAL
     Route: 048
     Dates: start: 20080501, end: 20080901
  2. VYVANSE [Suspect]
     Indication: ATTENTION DEFICIT/HYPERACTIVITY DISORDER
     Dosage: 50 MG, 1X/DAY:QD, ORAL ; 40 MG, 1X/DAY:QD, ORAL
     Route: 048
     Dates: start: 20080901
  3. DESVENLAFAXINE(DESVENLAFAXINE) [Suspect]
     Indication: ANXIETY
     Dosage: 1X/DAY:QD, ORAL
     Route: 048
     Dates: start: 20080201, end: 20081001
  4. DESVENLAFAXINE(DESVENLAFAXINE) [Suspect]
     Indication: DEPRESSION
     Dosage: 1X/DAY:QD, ORAL
     Route: 048
     Dates: start: 20080201, end: 20081001
  5. KLONOPIN [Concomitant]

REACTIONS (5)
  - ANXIETY [None]
  - CONDITION AGGRAVATED [None]
  - DISTURBANCE IN ATTENTION [None]
  - IRRITABILITY [None]
  - NAUSEA [None]
